FAERS Safety Report 5585771-3 (Version None)
Quarter: 2007Q4

REPORT INFORMATION
  Report Type: 
  Country: None (occurrence: None)
  Receive Date: 20071203
  Receipt Date: 20070131
  Transmission Date: 20080405
  Serious: Yes (Other)
  Sender: FDA-Public Use
  Company Number: 2007008713

PATIENT
  Sex: Female

DRUGS (3)
  1. ZYVOX [Suspect]
  2. VIAGRA [Concomitant]
  3. GENTAMICIN SULFATE [Concomitant]

REACTIONS (1)
  - RASH [None]
